FAERS Safety Report 4346077-3 (Version None)
Quarter: 2004Q2

REPORT INFORMATION
  Report Type: 
  Country: None (occurrence: None)
  Receive Date: 20040420
  Receipt Date: 20040407
  Transmission Date: 20050107
  Serious: Yes (Hospitalization)
  Sender: FDA-Public Use
  Company Number: A02200401246

PATIENT
  Age: 32 Month
  Sex: Male

DRUGS (4)
  1. FASTURTEC - (RASBURICASE) - SOLUTION = UNIT DOSE : UNKNOWN /SOLUTION - [Suspect]
     Indication: HYPERURICAEMIA
     Dosage: 3.2 MG QD INTRVENOUS NOS
     Route: 042
     Dates: start: 20040225, end: 20040229
  2. FASTURTEC - (RASBURICASE) - SOLUTION = UNIT DOSE : UNKNOWN /SOLUTION - [Suspect]
     Indication: PROPHYLAXIS
     Dosage: 3.2 MG QD INTRVENOUS NOS
     Route: 042
     Dates: start: 20040225, end: 20040229
  3. SOLU-MEDROL - (METHYLPREDNISOLONE SODIUM SUCCINATE) SOLUTION - UNIT UN [Suspect]
     Dosage: 3.2 MG INTRAVENOUS NOS
     Route: 042
     Dates: start: 20040302, end: 20040302
  4. BACTRIM PAEDIATRIC - (SULFAMETHOXAZOLE/TRIMTHOPRIME) [Suspect]
     Dosage: 3.2 MG QD, 20 MG, OD, 2 DF
     Dates: start: 20040305, end: 20040305

REACTIONS (3)
  - ALANINE AMINOTRANSFERASE INCREASED [None]
  - ASPARTATE AMINOTRANSFERASE INCREASED [None]
  - HEPATOCELLULAR DAMAGE [None]
